FAERS Safety Report 13412120 (Version 3)
Quarter: 2024Q1

REPORT INFORMATION
  Report Type: Spontaneous
  Country: US (occurrence: US)
  Receive Date: 20170406
  Receipt Date: 20240227
  Transmission Date: 20240410
  Serious: No
  Sender: FDA-Public Use
  Company Number: US-JNJFOC-20170316676

PATIENT
  Age: 20 Year
  Sex: Male

DRUGS (20)
  1. RISPERDAL [Suspect]
     Active Substance: RISPERIDONE
     Indication: Schizophrenia
     Route: 048
     Dates: start: 20040120, end: 20040520
  2. RISPERDAL [Suspect]
     Active Substance: RISPERIDONE
     Indication: Paranoia
     Dosage: VARYING DOSE OF 2.0 MG TO 3.0 MG
     Route: 048
     Dates: start: 20040523, end: 20100223
  3. RISPERDAL [Suspect]
     Active Substance: RISPERIDONE
     Route: 048
     Dates: start: 20050210, end: 20050212
  4. RISPERDAL [Suspect]
     Active Substance: RISPERIDONE
     Route: 048
     Dates: start: 20070630, end: 20071022
  5. RISPERDAL [Suspect]
     Active Substance: RISPERIDONE
     Route: 048
     Dates: start: 20080129, end: 20090320
  6. RISPERDAL [Suspect]
     Active Substance: RISPERIDONE
     Route: 048
     Dates: start: 20100222, end: 20100223
  7. RISPERDAL [Suspect]
     Active Substance: RISPERIDONE
     Indication: Schizophrenia
     Route: 048
     Dates: start: 20090301, end: 20090320
  8. RISPERDAL [Suspect]
     Active Substance: RISPERIDONE
     Indication: Paranoia
  9. RISPERDAL CONSTA [Suspect]
     Active Substance: RISPERIDONE
     Indication: Schizophrenia
     Dosage: VARYING DOSE OF 25 MG, 37.5 MG TO 50 MG
     Route: 030
     Dates: start: 20070613, end: 20100222
  10. RISPERDAL CONSTA [Suspect]
     Active Substance: RISPERIDONE
     Indication: Paranoia
  11. RISPERDAL CONSTA [Suspect]
     Active Substance: RISPERIDONE
  12. RISPERDAL CONSTA [Suspect]
     Active Substance: RISPERIDONE
  13. RISPERDAL M-TAB [Suspect]
     Active Substance: RISPERIDONE
     Indication: Schizophrenia
     Route: 048
     Dates: start: 20040120, end: 20040121
  14. RISPERDAL M-TAB [Suspect]
     Active Substance: RISPERIDONE
     Indication: Paranoia
  15. RISPERDAL M-TAB [Suspect]
     Active Substance: RISPERIDONE
     Indication: Schizophrenia
     Route: 048
     Dates: start: 20040122, end: 20040205
  16. RISPERDAL M-TAB [Suspect]
     Active Substance: RISPERIDONE
     Indication: Paranoia
  17. INVEGA [Suspect]
     Active Substance: PALIPERIDONE
     Indication: Product used for unknown indication
     Route: 048
  18. INVEGA SUSTENNA [Suspect]
     Active Substance: PALIPERIDONE PALMITATE
     Indication: Schizophrenia
     Route: 030
     Dates: start: 20100715, end: 20140416
  19. INVEGA SUSTENNA [Suspect]
     Active Substance: PALIPERIDONE PALMITATE
     Indication: Paranoia
     Route: 030
     Dates: start: 20100715, end: 20160617
  20. INVEGA SUSTENNA [Suspect]
     Active Substance: PALIPERIDONE PALMITATE

REACTIONS (5)
  - Gynaecomastia [Unknown]
  - Emotional disorder [Unknown]
  - Muscle spasms [Unknown]
  - Musculoskeletal stiffness [Unknown]
  - Anxiety [Unknown]

NARRATIVE: CASE EVENT DATE: 20040523
